FAERS Safety Report 15628192 (Version 3)
Quarter: 2019Q2

REPORT INFORMATION
  Report Type: Spontaneous
  Country: US (occurrence: US)
  Receive Date: 20181116
  Receipt Date: 20190402
  Transmission Date: 20190711
  Serious: No
  Sender: FDA-Public Use
  Company Number: US-PFIZER INC-2018472391

PATIENT
  Age: 60 Year
  Sex: Female

DRUGS (1)
  1. LYRICA [Suspect]
     Active Substance: PREGABALIN
     Indication: POLYNEUROPATHY
     Dosage: 1 DF, 3X/DAY (TAKE 1 CAP THREE TIMES DAILY; MAX DAILY AMOUNT: 300 MG)
     Route: 048
     Dates: start: 20181029

REACTIONS (1)
  - Neuralgia [Unknown]

NARRATIVE: CASE EVENT DATE: 20181029
